FAERS Safety Report 11254382 (Version 2)
Quarter: 2015Q3

REPORT INFORMATION
  Report Type: Spontaneous
  Country: AU (occurrence: AU)
  Receive Date: 20150709
  Receipt Date: 20150807
  Transmission Date: 20151125
  Serious: Yes (Other)
  Sender: FDA-Public Use
  Company Number: AU-JNJFOC-20150703145

PATIENT
  Age: 45 Year
  Sex: Male

DRUGS (2)
  1. CITALOPRAM [Concomitant]
     Active Substance: CITALOPRAM HYDROBROMIDE
     Route: 048
  2. STELARA [Suspect]
     Active Substance: USTEKINUMAB
     Indication: PSORIASIS
     Dosage: APPROXIMATELY 10 INJECTIONS
     Route: 058
     Dates: start: 201211, end: 201501

REACTIONS (1)
  - Adenocarcinoma of salivary gland [Unknown]

NARRATIVE: CASE EVENT DATE: 201412
